FAERS Safety Report 13634131 (Version 5)
Quarter: 2017Q3

REPORT INFORMATION
  Report Type: Report from Study
  Country: CA (occurrence: CA)
  Receive Date: 20170609
  Receipt Date: 20170822
  Transmission Date: 20171127
  Serious: Yes (Other)
  Sender: FDA-Public Use
  Company Number: CA-SHIRE-CA201711009

PATIENT
  Age: 45 Year
  Sex: Female

DRUGS (10)
  1. CINRYZE [Suspect]
     Active Substance: HUMAN C1-ESTERASE INHIBITOR
     Indication: OFF LABEL USE
  2. CINRYZE [Suspect]
     Active Substance: HUMAN C1-ESTERASE INHIBITOR
     Indication: PROPHYLAXIS
     Dosage: 1500 IU, OTHER (EVERY OTHER DAY)
     Route: 042
     Dates: start: 20161003, end: 201706
  3. CINRYZE [Suspect]
     Active Substance: HUMAN C1-ESTERASE INHIBITOR
     Indication: HEREDITARY ANGIOEDEMA
     Dosage: UNK, AS REQ^D
     Route: 041
     Dates: start: 201706
  4. PREMARIN [Concomitant]
     Active Substance: ESTROGENS, CONJUGATED
     Indication: PRODUCT USED FOR UNKNOWN INDICATION
     Dosage: UNK, UNKNOWN
     Route: 065
     Dates: end: 201612
  5. BERINERT [Concomitant]
     Active Substance: HUMAN C1-ESTERASE INHIBITOR
     Indication: PRODUCT USED FOR UNKNOWN INDICATION
     Dosage: 1500 IU, 3X A WEEK
     Route: 065
  6. NABUMETONE. [Concomitant]
     Active Substance: NABUMETONE
     Indication: PRODUCT USED FOR UNKNOWN INDICATION
     Dosage: UNK, UNKNOWN
     Route: 065
  7. ONDANSETRON [Concomitant]
     Active Substance: ONDANSETRON
     Indication: PRODUCT USED FOR UNKNOWN INDICATION
     Dosage: UNK, UNKNOWN
     Route: 065
  8. FIRAZYR [Suspect]
     Active Substance: ICATIBANT ACETATE
     Indication: HEREDITARY ANGIOEDEMA
     Dosage: 30 MG, AS REQ^D
     Route: 058
     Dates: start: 201604
  9. TRANEXAMIC ACID. [Concomitant]
     Active Substance: TRANEXAMIC ACID
     Indication: PRODUCT USED FOR UNKNOWN INDICATION
     Dosage: 1000 MG (500 MG TWO TABLETS), 2X/DAY:BID
     Route: 065
     Dates: start: 20161110, end: 20161210
  10. BERINERT [Concomitant]
     Active Substance: HUMAN C1-ESTERASE INHIBITOR
     Dosage: 4500 UNITS EVERY TWO DAYS
     Route: 058
     Dates: start: 2017

REACTIONS (35)
  - Injection site mass [Unknown]
  - Infusion related reaction [Not Recovered/Not Resolved]
  - Drug effect decreased [Unknown]
  - Infusion site bruising [Unknown]
  - Pruritus [Unknown]
  - Vessel puncture site pain [Not Recovered/Not Resolved]
  - Dizziness [Recovering/Resolving]
  - Prescribed overdose [Not Recovered/Not Resolved]
  - Incorrect drug administration rate [Unknown]
  - Off label use [Unknown]
  - Thrombosis [Unknown]
  - Abdominal pain [Unknown]
  - Adverse event [Unknown]
  - Sensation of foreign body [Recovered/Resolved]
  - Hereditary angioedema [Unknown]
  - Swelling [Unknown]
  - Burning sensation [Unknown]
  - Poor venous access [Unknown]
  - Poor quality sleep [Unknown]
  - Inappropriate schedule of drug administration [Not Recovered/Not Resolved]
  - Drug dose omission [Recovered/Resolved]
  - Pain in extremity [Unknown]
  - Chest discomfort [Recovered/Resolved]
  - Injection site hypoaesthesia [Recovered/Resolved]
  - Pain [Unknown]
  - Hot flush [Unknown]
  - Aphonia [Unknown]
  - Hereditary angioedema [Unknown]
  - Pharyngeal oedema [Unknown]
  - Blister [Recovering/Resolving]
  - Skin discolouration [Unknown]
  - Anxiety [Unknown]
  - Limb mass [Unknown]
  - Underdose [Unknown]
  - Drug ineffective [Unknown]

NARRATIVE: CASE EVENT DATE: 20161003
